FAERS Safety Report 8891368 (Version 1)
Quarter: 2012Q4

REPORT INFORMATION
  Report Type: Spontaneous
  Country: US (occurrence: None)
  Receive Date: 20121105
  Receipt Date: 20121105
  Transmission Date: 20130627
  Serious: Yes (Life-Threatening, Hospitalization)
  Sender: FDA-Public Use
  Company Number: None

PATIENT
  Sex: Male
  Weight: 75.75 kg

DRUGS (1)
  1. AZOR [Suspect]
     Indication: HYPERTENSION
     Route: 048

REACTIONS (6)
  - Gingival pain [None]
  - Gingival swelling [None]
  - Throat tightness [None]
  - Swelling face [None]
  - Dizziness [None]
  - Drug hypersensitivity [None]
